FAERS Safety Report 10796117 (Version 1)
Quarter: 2015Q1

REPORT INFORMATION
  Report Type: Spontaneous
  Country: US (occurrence: US)
  Receive Date: 20150216
  Receipt Date: 20150216
  Transmission Date: 20150721
  Serious: No
  Sender: FDA-Public Use
  Company Number: US-ASTRAZENECA-2015SE13104

PATIENT
  Age: 67 Year
  Sex: Male
  Weight: 79.4 kg

DRUGS (20)
  1. ULORIC [Concomitant]
     Active Substance: FEBUXOSTAT
     Route: 065
  2. HUMALOG [Concomitant]
     Active Substance: INSULIN LISPRO
     Route: 065
  3. CENTRUM [Concomitant]
     Active Substance: VITAMINS
     Dosage: EVERY DAY
     Route: 065
  4. SYMLIN [Suspect]
     Active Substance: PRAMLINTIDE ACETATE
     Indication: TYPE 2 DIABETES MELLITUS
     Route: 058
     Dates: start: 2005
  5. RESTASIS [Concomitant]
     Active Substance: CYCLOSPORINE
     Route: 065
  6. LANTUS [Concomitant]
     Active Substance: INSULIN GLARGINE
     Route: 065
  7. LIPITOR [Concomitant]
     Active Substance: ATORVASTATIN CALCIUM
     Route: 065
  8. LOSARTAN [Concomitant]
     Active Substance: LOSARTAN
     Route: 065
  9. POTASSIUM CL ER [Concomitant]
     Route: 065
  10. LANSCRAF [Concomitant]
     Dosage: EVERY DAY
     Route: 065
  11. LASIX [Concomitant]
     Active Substance: FUROSEMIDE
     Route: 065
  12. INSPRA [Concomitant]
     Active Substance: EPLERENONE
     Route: 065
  13. VITAMIN B12 [Concomitant]
     Active Substance: CYANOCOBALAMIN
     Dosage: EVERY DAY
     Route: 065
  14. PRADAXA [Concomitant]
     Active Substance: DABIGATRAN ETEXILATE MESYLATE
     Route: 065
  15. SOTALOL. [Concomitant]
     Active Substance: SOTALOL
     Route: 065
  16. AMMONIUM LATACE [Concomitant]
     Dosage: AS REQUIRED
     Route: 065
  17. PATADAY [Concomitant]
     Active Substance: OLOPATADINE HYDROCHLORIDE
     Dosage: EVERY DAY
     Route: 065
  18. VITAMIN D [Concomitant]
     Active Substance: CHOLECALCIFEROL
     Route: 065
  19. COREG [Concomitant]
     Active Substance: CARVEDILOL
     Route: 065
  20. Q-10 [Concomitant]
     Route: 065

REACTIONS (2)
  - Deafness [Unknown]
  - Weight decreased [Unknown]

NARRATIVE: CASE EVENT DATE: 2013
